FAERS Safety Report 20995364 (Version 4)
Quarter: 2022Q4

REPORT INFORMATION
  Report Type: Report from Study
  Country: US (occurrence: US)
  Receive Date: 20220622
  Receipt Date: 20221128
  Transmission Date: 20230113
  Serious: Yes (Other)
  Sender: FDA-Public Use
  Company Number: US-TAKEDA-2022TUS018945

PATIENT
  Sex: Female
  Weight: 59 kg

DRUGS (52)
  1. HUMAN IMMUNOGLOBULIN G [Suspect]
     Active Substance: HUMAN IMMUNOGLOBULIN G
     Indication: Immunodeficiency common variable
     Dosage: 15 GRAM, Q2WEEKS
     Route: 058
     Dates: start: 20220218
  2. ACETAMINOPHEN [Concomitant]
     Active Substance: ACETAMINOPHEN
     Route: 065
  3. DIPHENHYDRAMINE [Concomitant]
     Active Substance: DIPHENHYDRAMINE
     Route: 065
  4. EPINEPHRINE [Concomitant]
     Active Substance: EPINEPHRINE
     Route: 065
  5. Lmx [Concomitant]
     Route: 065
  6. RIZATRIPTAN [Concomitant]
     Active Substance: RIZATRIPTAN
     Route: 065
  7. METAXALONE [Concomitant]
     Active Substance: METAXALONE
     Route: 065
  8. PULMICORT TURBUHALER [Concomitant]
     Active Substance: BUDESONIDE
     Route: 065
  9. FASLODEX [Concomitant]
     Active Substance: FULVESTRANT
     Route: 065
  10. VALACYCLOVIR [Concomitant]
     Active Substance: VALACYCLOVIR HYDROCHLORIDE
     Route: 065
  11. VITAMIN C [Concomitant]
     Active Substance: ASCORBIC ACID
     Route: 065
  12. THIAMINE HYDROCHLORIDE [Concomitant]
     Active Substance: THIAMINE HYDROCHLORIDE
     Route: 065
  13. VITAMIN E [Concomitant]
     Active Substance: .ALPHA.-TOCOPHEROL
     Route: 065
  14. CLOTRIMAZOLE [Concomitant]
     Active Substance: CLOTRIMAZOLE
     Route: 065
  15. BIOTIN [Concomitant]
     Active Substance: BIOTIN
     Route: 065
  16. PYRIDOXINE [Concomitant]
     Active Substance: PYRIDOXINE
     Route: 065
  17. NIACIN [Concomitant]
     Active Substance: NIACIN
     Route: 065
  18. TART CHERRY [Concomitant]
     Route: 065
  19. ASTAXANTHIN [Concomitant]
     Active Substance: ASTAXANTHIN
     Route: 065
  20. FISH OIL [Concomitant]
     Active Substance: FISH OIL
     Route: 065
  21. VITAMIN B12 [Concomitant]
     Active Substance: CYANOCOBALAMIN
     Route: 065
  22. SELENIUM [Concomitant]
     Active Substance: SELENIUM
     Route: 065
  23. UBIQUINOL [Concomitant]
     Active Substance: UBIQUINOL
     Route: 065
  24. ACETYLCARNITINE [Concomitant]
     Active Substance: ACETYLCARNITINE
     Route: 065
  25. CHOLINE [Concomitant]
     Active Substance: CHOLINE
     Route: 065
  26. ALPHA LIPOIC ACID [Concomitant]
     Active Substance: .ALPHA.-LIPOIC ACID
     Route: 065
  27. MENAQUINONE 6 [Concomitant]
     Active Substance: MENAQUINONE 6
     Route: 065
  28. DIETARY SUPPLEMENT\HERBALS\MILK THISTLE [Concomitant]
     Active Substance: DIETARY SUPPLEMENT\HERBALS\MILK THISTLE
     Route: 065
  29. METHOCARBAMOL [Concomitant]
     Active Substance: METHOCARBAMOL
     Route: 065
  30. LYCOPENE [Concomitant]
     Active Substance: LYCOPENE
     Route: 065
  31. POTASSIUM CHLORIDE [Concomitant]
     Active Substance: POTASSIUM CHLORIDE
     Route: 065
  32. SILICON DIOXIDE [Concomitant]
     Active Substance: SILICON DIOXIDE
     Route: 065
  33. GLUTATHIONE [Concomitant]
     Active Substance: GLUTATHIONE
     Route: 065
  34. COLLAGEN WITH LYSINE + VITAMIN C [Concomitant]
     Route: 065
  35. VITAMIN D3 [Concomitant]
     Active Substance: CHOLECALCIFEROL
     Route: 065
  36. ARGININE CARDIO [Concomitant]
     Route: 065
  37. CALCIUM CARBONATE\CHOLECALCIFEROL [Concomitant]
     Active Substance: CALCIUM CARBONATE\CHOLECALCIFEROL
     Route: 065
  38. POLYETHYLENE GLYCOL [Concomitant]
     Active Substance: POLYETHYLENE GLYCOL
     Route: 065
  39. VITAMIN B2 [Concomitant]
     Active Substance: RIBOFLAVIN
     Route: 065
  40. XGEVA [Concomitant]
     Active Substance: DENOSUMAB
     Route: 065
  41. XIFAXAN [Concomitant]
     Active Substance: RIFAXIMIN
     Route: 065
  42. MAGNESIUM OXIDE [Concomitant]
     Active Substance: MAGNESIUM OXIDE
     Route: 065
  43. ALBUTEROL SULFATE [Concomitant]
     Active Substance: ALBUTEROL SULFATE
     Route: 065
  44. FLUTICASONE PROPIONATE\SALMETEROL XINAFOATE [Concomitant]
     Active Substance: FLUTICASONE PROPIONATE\SALMETEROL XINAFOATE
     Route: 065
  45. CHROMIUM [Concomitant]
     Active Substance: CHROMIC CHLORIDE\CHROMIUM
     Route: 065
  46. Metagenics benesom [Concomitant]
     Route: 065
  47. SPM [Concomitant]
     Route: 065
  48. ACETYLCARNITINE [Concomitant]
     Active Substance: ACETYLCARNITINE
     Route: 065
  49. HERBALS [Concomitant]
     Active Substance: HERBALS
     Route: 065
  50. SUPER GLA [Concomitant]
     Route: 065
  51. TRIAMCINOLONE ACETONIDE [Concomitant]
     Active Substance: TRIAMCINOLONE ACETONIDE
     Route: 065
  52. VITAMIN K [Concomitant]
     Active Substance: PHYTONADIONE
     Route: 065

REACTIONS (18)
  - Breast cancer [Unknown]
  - Colitis microscopic [Unknown]
  - Gastrointestinal disorder [Unknown]
  - Oral pain [Unknown]
  - Food craving [Unknown]
  - Constipation [Unknown]
  - Tendonitis [Unknown]
  - Product use complaint [Unknown]
  - Body fat disorder [Unknown]
  - Infusion site scar [Unknown]
  - Herpes virus infection [Unknown]
  - Headache [Unknown]
  - Skin ulcer [Unknown]
  - Epistaxis [Unknown]
  - Infusion site swelling [Unknown]
  - Fatigue [Unknown]
  - Diarrhoea [Unknown]
  - Ear discomfort [Unknown]
